FAERS Safety Report 4778923-3 (Version None)
Quarter: 2005Q3

REPORT INFORMATION
  Report Type: 
  Country: None (occurrence: None)
  Receive Date: 20050922
  Receipt Date: 20050908
  Transmission Date: 20060218
  Serious: Yes (Life-Threatening)
  Sender: FDA-Public Use
  Company Number: 2005RL000120

PATIENT
  Age: 5 Year
  Sex: Male

DRUGS (2)
  1. OMACOR [Suspect]
     Indication: ILL-DEFINED DISORDER
     Dosage: 1 GM; QD; PO
     Route: 048
     Dates: start: 20050401, end: 20050601
  2. FLUVASTATIN [Concomitant]

REACTIONS (1)
  - EXTRASYSTOLES [None]
